FAERS Safety Report 4393925-7 (Version None)
Quarter: 2004Q3

REPORT INFORMATION
  Report Type: 
  Country: None (occurrence: None)
  Receive Date: 20040702
  Receipt Date: 20040621
  Transmission Date: 20050211
  Serious: Yes (Other)
  Sender: FDA-Public Use
  Company Number: BIVUS040050

PATIENT
  Age: 71 Year
  Sex: Male

DRUGS (6)
  1. ANGIOMAX [Suspect]
     Indication: ANTICOAGULANT THERAPY
     Dosage: SEE IMAGE
     Dates: start: 20040621, end: 20040621
  2. ANGIOMAX [Suspect]
     Indication: STENT PLACEMENT
     Dosage: SEE IMAGE
     Dates: start: 20040621, end: 20040621
  3. BETA BLOCKING AGENTS [Concomitant]
  4. ACE INHIBITOR NOS [Concomitant]
  5. ASPIRIN [Concomitant]
  6. PLAVIX [Concomitant]

REACTIONS (6)
  - AMAUROSIS FUGAX [None]
  - BLINDNESS TRANSIENT [None]
  - CATHETER RELATED COMPLICATION [None]
  - COAGULATION TIME ABNORMAL [None]
  - EAR PAIN [None]
  - THROMBOSIS [None]
